FAERS Safety Report 7637611-6 (Version None)
Quarter: 2011Q3

REPORT INFORMATION
  Report Type: 
  Country: None (occurrence: None)
  Receive Date: 20110726
  Receipt Date: 20110718
  Transmission Date: 20111222
  Serious: Yes (Other)
  Sender: FDA-Public Use
  Company Number: PHHY2011KR65252

PATIENT
  Age: 19 Year
  Sex: Male

DRUGS (4)
  1. ALPRAZOLAM [Concomitant]
     Dosage: 0.25 MG, UNK
  2. LORAZEPAM [Concomitant]
     Dosage: 0.5 MG, UNK
  3. MIRTAZAPINE [Suspect]
     Indication: MAJOR DEPRESSION
     Dosage: 7.5 MG, UNK
  4. MIRTAZAPINE [Suspect]
     Dosage: 30 MG, UNK

REACTIONS (6)
  - HEPATOCELLULAR INJURY [None]
  - NAUSEA [None]
  - ASPARTATE AMINOTRANSFERASE INCREASED [None]
  - ALANINE AMINOTRANSFERASE INCREASED [None]
  - VOMITING [None]
  - ABDOMINAL DISCOMFORT [None]
